FAERS Safety Report 8546760-X (Version None)
Quarter: 2012Q3

REPORT INFORMATION
  Report Type: 
  Country: None (occurrence: None)
  Receive Date: 20120727
  Receipt Date: 20120206
  Transmission Date: 20120928
  Serious: No
  Sender: FDA-Public Use
  Company Number: US-ASTRAZENECA-2012SE07856

PATIENT
  Age: 83 Year
  Sex: Female

DRUGS (2)
  1. SEROQUEL [Suspect]
     Dosage: 100 MG, SOMETIMES THREE TIMES A DAY
     Route: 048
  2. SEROQUEL [Suspect]
     Route: 048

REACTIONS (3)
  - INAPPROPRIATE SCHEDULE OF DRUG ADMINISTRATION [None]
  - AGGRESSION [None]
  - DEMENTIA ALZHEIMER'S TYPE [None]
